FAERS Safety Report 23169059 (Version 1)
Quarter: 2023Q4

REPORT INFORMATION
  Report Type: Report from Study
  Country: BR (occurrence: BR)
  Receive Date: 20231110
  Receipt Date: 20231110
  Transmission Date: 20240110
  Serious: Yes (Hospitalization)
  Sender: FDA-Public Use
  Company Number: BR-ABBOTT-2023A-1370161

PATIENT
  Sex: Female
  Weight: 82 kg

DRUGS (1)
  1. DIVALPROEX SODIUM [Suspect]
     Active Substance: DIVALPROEX SODIUM
     Indication: Bipolar disorder
     Dosage: TIME INTERVAL: 0.33333333 DAYS: UNIT DOSE: 250 MILLIGRAM, THREE TIMES A DAY, AT 6 A.M., 2 P.M. AN...
     Route: 048
     Dates: start: 2021

REACTIONS (2)
  - Cerebrovascular accident [Unknown]
  - Chronic obstructive pulmonary disease [Unknown]

NARRATIVE: CASE EVENT DATE: 20221201
